FAERS Safety Report 16042601 (Version 1)
Quarter: 2019Q2

REPORT INFORMATION
  Report Type: Spontaneous
  Country: US (occurrence: US)
  Receive Date: 20190306
  Receipt Date: 20190306
  Transmission Date: 20190711
  Serious: Yes (Death)
  Sender: FDA-Public Use
  Company Number: None

PATIENT
  Age: 46 Year
  Sex: Female
  Weight: 58.5 kg

DRUGS (2)
  1. FROVATRIPTAN. [Suspect]
     Active Substance: FROVATRIPTAN
     Indication: PANIC ATTACK
     Dosage: ?          QUANTITY:1 TABLET(S);?
     Route: 048
     Dates: start: 20080101, end: 20160916
  2. ALPRAZOLAM. [Suspect]
     Active Substance: ALPRAZOLAM
     Indication: PANIC ATTACK
     Dosage: ?          QUANTITY:1 TABLET(S);?
     Route: 048
     Dates: start: 20080101, end: 20160918

REACTIONS (11)
  - Loss of consciousness [None]
  - Hypertensive crisis [None]
  - Pulmonary oedema [None]
  - Renal disorder [None]
  - Product use complaint [None]
  - Pulmonary congestion [None]
  - Panic attack [None]
  - Condition aggravated [None]
  - Product prescribing error [None]
  - Tachyarrhythmia [None]
  - Phaeochromocytoma [None]

NARRATIVE: CASE EVENT DATE: 20160918
